FAERS Safety Report 8188157-0 (Version None)
Quarter: 2012Q1

REPORT INFORMATION
  Report Type: 
  Country: None (occurrence: None)
  Receive Date: 20120221
  Receipt Date: 20111021
  Transmission Date: 20120608
  Serious: Yes (Hospitalization)
  Sender: FDA-Public Use
  Company Number: PHEH2011US06636

PATIENT
  Sex: Female

DRUGS (1)
  1. TOBI [Suspect]
     Dosage: INHALATION
     Route: 055
     Dates: end: 20100615

REACTIONS (2)
  - BRONCHOSPASM [None]
  - CHEST DISCOMFORT [None]
